FAERS Safety Report 10780369 (Version 1)
Quarter: 2015Q1

REPORT INFORMATION
  Report Type: Spontaneous
  Country: US (occurrence: None)
  Receive Date: 20150206
  Receipt Date: 20150206
  Transmission Date: 20150721
  Serious: No
  Sender: FDA-Public Use
  Company Number: None

PATIENT
  Age: 48 Year
  Sex: Male

DRUGS (1)
  1. NEXAVAR [Suspect]
     Active Substance: SORAFENIB
     Indication: RENAL CANCER
     Route: 048
     Dates: start: 20141208

REACTIONS (4)
  - Alopecia [None]
  - Decreased appetite [None]
  - Blister [None]
  - Nausea [None]

NARRATIVE: CASE EVENT DATE: 20150201
